FAERS Safety Report 19614508 (Version 1)
Quarter: 2021Q3

REPORT INFORMATION
  Report Type: Spontaneous
  Country: US (occurrence: US)
  Receive Date: 20210727
  Receipt Date: 20210727
  Transmission Date: 20211014
  Serious: Yes (Other)
  Sender: FDA-Public Use
  Company Number: US-PFIZER INC-202100924396

PATIENT
  Age: 64 Year
  Sex: Female

DRUGS (2)
  1. DALTEPARIN [Concomitant]
     Active Substance: DALTEPARIN
     Indication: DEEP VEIN THROMBOSIS
     Dosage: UNK
  2. PACLITAXEL. [Suspect]
     Active Substance: PACLITAXEL
     Indication: OVARIAN CANCER METASTATIC
     Dosage: 100 MG/M2 WEEKLY

REACTIONS (1)
  - Hypersensitivity pneumonitis [Recovered/Resolved]
